FAERS Safety Report 8314357-2 (Version None)
Quarter: 2012Q1

REPORT INFORMATION
  Report Type: 
  Country: None (occurrence: None)
  Receive Date: 20120315
  Receipt Date: 20110613
  Transmission Date: 20120608
  Serious: Yes (Other)
  Sender: FDA-Public Use
  Company Number: PHHY2011US25108

PATIENT
  Age: 42 Year
  Sex: Female

DRUGS (4)
  1. NADOLOL [Concomitant]
  2. PROPRANOLOL [Concomitant]
  3. PREDNISONE TAB [Concomitant]
  4. GILENYA [Suspect]
     Indication: MULTIPLE SCLEROSIS
     Dosage: 0.5 MG, QD, ORAL :  0.25 MG,ORAL
     Route: 048
     Dates: start: 20110318

REACTIONS (2)
  - INCORRECT DOSE ADMINISTERED [None]
  - MIGRAINE [None]
